FAERS Safety Report 6840632-4 (Version None)
Quarter: 2010Q3

REPORT INFORMATION
  Report Type: 
  Country: None (occurrence: None)
  Receive Date: 20100714
  Receipt Date: 20100701
  Transmission Date: 20110219
  Serious: Yes (Other)
  Sender: FDA-Public Use
  Company Number: GB-ELI_LILLY_AND_COMPANY-GB201007000109

PATIENT
  Age: 22 Year
  Sex: Male

DRUGS (2)
  1. OLANZAPINE [Suspect]
     Indication: DEPRESSION
     Dosage: 10 MG, 2/D
     Route: 048
     Dates: start: 20100204, end: 20100622
  2. DOSULEPIN [Concomitant]
     Indication: DEPRESSION
     Dosage: 150 MG, DAILY (1/D)
     Route: 048
     Dates: start: 20100111

REACTIONS (1)
  - AZOOSPERMIA [None]
